FAERS Safety Report 8422764-2 (Version None)
Quarter: 2012Q2

REPORT INFORMATION
  Report Type: 
  Country: None (occurrence: None)
  Receive Date: 20120608
  Receipt Date: 20120605
  Transmission Date: 20120825
  Serious: Yes (Disabling, Other)
  Sender: FDA-Public Use
  Company Number: FR-MERCK-1206FRA00026

PATIENT
  Age: 62 Year
  Sex: Male

DRUGS (6)
  1. FEBUXOSTAT [Concomitant]
     Route: 048
  2. FLUINDIONE [Concomitant]
     Route: 048
  3. ZOCOR [Suspect]
     Indication: HYPERCHOLESTEROLAEMIA
     Route: 048
     Dates: start: 20110101, end: 20120501
  4. AMIODARONE HYDROCHLORIDE [Concomitant]
     Route: 048
  5. ZOCOR [Suspect]
     Route: 048
     Dates: start: 20120501, end: 20120530
  6. BISOPROLOL [Concomitant]
     Route: 048

REACTIONS (3)
  - RHABDOMYOLYSIS [None]
  - MOTOR DYSFUNCTION [None]
  - RENAL FAILURE [None]
